FAERS Safety Report 25304890 (Version 1)
Quarter: 2025Q2

REPORT INFORMATION
  Report Type: Spontaneous
  Country: US (occurrence: US)
  Receive Date: 20250513
  Receipt Date: 20250513
  Transmission Date: 20250716
  Serious: No
  Sender: PFIZER
  Company Number: US-PFIZER INC-PV202500056591

PATIENT

DRUGS (1)
  1. CIBINQO [Suspect]
     Active Substance: ABROCITINIB
     Route: 048

REACTIONS (1)
  - Seborrhoea [Unknown]
